FAERS Safety Report 5522302-8 (Version None)
Quarter: 2007Q4

REPORT INFORMATION
  Report Type: 
  Country: None (occurrence: None)
  Receive Date: 20071120
  Receipt Date: 20071111
  Transmission Date: 20080405
  Serious: Yes (Other)
  Sender: FDA-Public Use
  Company Number: DE-JNJFOC-20071105385

PATIENT
  Sex: Female

DRUGS (1)
  1. IMOGAS [Suspect]
     Indication: ABDOMINAL PAIN
     Dosage: UNKNOWN

REACTIONS (2)
  - DYSPNOEA [None]
  - PHARYNGEAL OEDEMA [None]
